FAERS Safety Report 8386932-0 (Version None)
Quarter: 2012Q2

REPORT INFORMATION
  Report Type: 
  Country: None (occurrence: None)
  Receive Date: 20120525
  Receipt Date: 20120518
  Transmission Date: 20120825
  Serious: Yes (Hospitalization, Other)
  Sender: FDA-Public Use
  Company Number: US-JNJFOC-20120516309

PATIENT
  Sex: Male
  Weight: 104.78 kg

DRUGS (1)
  1. XARELTO [Suspect]
     Indication: THROMBOSIS PROPHYLAXIS
     Route: 048
     Dates: start: 20111108

REACTIONS (2)
  - TRANSFUSION [None]
  - GASTROINTESTINAL HAEMORRHAGE [None]
